FAERS Safety Report 5419336-0 (Version None)
Quarter: 2007Q3

REPORT INFORMATION
  Report Type: 
  Country: None (occurrence: None)
  Receive Date: 20070820
  Receipt Date: 20070809
  Transmission Date: 20080115
  Serious: Yes (Hospitalization)
  Sender: FDA-Public Use
  Company Number: GB-KINGPHARMUSA00001-K200701006

PATIENT

DRUGS (1)
  1. KEMADRIN [Suspect]

REACTIONS (1)
  - MITRAL VALVE DISEASE [None]
